FAERS Safety Report 10641474 (Version 1)
Quarter: 2014Q4

REPORT INFORMATION
  Report Type: Spontaneous
  Country: FR (occurrence: FR)
  Receive Date: 20141209
  Receipt Date: 20141209
  Transmission Date: 20150529
  Serious: Yes (Disabling, Other)
  Sender: FDA-Public Use
  Company Number: FR-GLAXOSMITHKLINE-FR2014GSK031905

PATIENT
  Age: 37 Year
  Sex: Female

DRUGS (1)
  1. VENTOLINE EVOHALER [Suspect]
     Active Substance: ALBUTEROL SULFATE
     Indication: PULMONARY FUNCTION TEST
     Dosage: 4 PUFF(S), UNK
     Dates: start: 20141124, end: 20141124

REACTIONS (3)
  - Seizure [Recovering/Resolving]
  - Paralysis [Not Recovered/Not Resolved]
  - Headache [Unknown]

NARRATIVE: CASE EVENT DATE: 20141124
